FAERS Safety Report 4849184-1 (Version None)
Quarter: 2005Q4

REPORT INFORMATION
  Report Type: 
  Country: None (occurrence: None)
  Receive Date: 20051209
  Receipt Date: 20051005
  Transmission Date: 20060501
  Serious: Yes (Hospitalization)
  Sender: FDA-Public Use
  Company Number: US-MERCK-0510USA04756

PATIENT
  Age: 45 Year
  Sex: Female
  Weight: 89 kg

DRUGS (4)
  1. VIOXX [Suspect]
     Indication: OSTEOARTHRITIS
     Route: 048
     Dates: start: 20011002, end: 20031201
  2. VIOXX [Suspect]
     Indication: SURGERY
     Route: 048
     Dates: start: 20011002, end: 20031201
  3. NEXIUM [Concomitant]
     Route: 065
  4. ESTRADIOL [Concomitant]
     Route: 065

REACTIONS (11)
  - BLINDNESS [None]
  - BLOOD PRESSURE INCREASED [None]
  - CARDIOVASCULAR DISORDER [None]
  - CHEST PAIN [None]
  - GASTROOESOPHAGEAL REFLUX DISEASE [None]
  - HYPERLIPIDAEMIA [None]
  - MIGRAINE [None]
  - MUSCULOSKELETAL CHEST PAIN [None]
  - OTITIS MEDIA [None]
  - PERIODONTAL DISEASE [None]
  - TRICUSPID VALVE INCOMPETENCE [None]
